FAERS Safety Report 17949779 (Version 1)
Quarter: 2020Q2

REPORT INFORMATION
  Report Type: Spontaneous
  Country: US (occurrence: US)
  Receive Date: 20200626
  Receipt Date: 20200626
  Transmission Date: 20200714
  Serious: Yes (Death)
  Sender: FDA-Public Use
  Company Number: None

PATIENT
  Age: 50 Year
  Sex: Male
  Weight: 65.6 kg

DRUGS (1)
  1. TOCILIZUMAB. [Suspect]
     Active Substance: TOCILIZUMAB
     Indication: COVID-19
     Dosage: ?          OTHER FREQUENCY:ONCE;?
     Route: 042
     Dates: start: 20200417, end: 20200417

REACTIONS (15)
  - Gastrointestinal haemorrhage [None]
  - Blood disorder [None]
  - Large intestinal ulcer [None]
  - Aspartate aminotransferase increased [None]
  - Thrombocytopenia [None]
  - Enterococcal infection [None]
  - Skin ulcer [None]
  - Hepatic enzyme increased [None]
  - Haematocrit decreased [None]
  - Full blood count abnormal [None]
  - Septic shock [None]
  - Duodenal ulcer [None]
  - Disseminated intravascular coagulation [None]
  - Intestinal ischaemia [None]
  - Alanine aminotransferase increased [None]

NARRATIVE: CASE EVENT DATE: 20200417
